FAERS Safety Report 10182529 (Version 1)
Quarter: 2014Q2

REPORT INFORMATION
  Report Type: Spontaneous
  Country: US (occurrence: None)
  Receive Date: 20140519
  Receipt Date: 20140519
  Transmission Date: 20141212
  Serious: No
  Sender: FDA-Public Use
  Company Number: None

PATIENT
  Age: 53 Year
  Sex: Male
  Weight: 90.72 kg

DRUGS (1)
  1. ESZOPICLONE [Suspect]
     Indication: INSOMNIA
     Dosage: 1?AT BEDTIME?TAKEN BY MOUTH
     Route: 048
     Dates: start: 20140507, end: 20140517

REACTIONS (6)
  - Insomnia [None]
  - Nausea [None]
  - Product taste abnormal [None]
  - Hangover [None]
  - Product quality issue [None]
  - Product substitution issue [None]
